FAERS Safety Report 8435958-7 (Version None)
Quarter: 2012Q2

REPORT INFORMATION
  Report Type: 
  Country: None (occurrence: None)
  Receive Date: 20120608
  Receipt Date: 20120608
  Transmission Date: 20120825
  Serious: Yes (Other)
  Sender: FDA-Public Use
  Company Number: None

PATIENT
  Age: 45 Year
  Sex: Female
  Weight: 56.246 kg

DRUGS (1)
  1. TRANSDERM SCOP [Suspect]
     Indication: MOTION SICKNESS
     Dosage: 1.5 MG, PATCH, EVERY 72 HOURS, TRANSDERMAL
     Route: 062
     Dates: start: 20120527, end: 20120603

REACTIONS (4)
  - DRUG WITHDRAWAL SYNDROME [None]
  - VISION BLURRED [None]
  - MYDRIASIS [None]
  - DRY MOUTH [None]
